FAERS Safety Report 17669349 (Version 3)
Quarter: 2020Q2

REPORT INFORMATION
  Report Type: Spontaneous
  Country: DE (occurrence: DE)
  Receive Date: 20200415
  Receipt Date: 20200512
  Transmission Date: 20200713
  Serious: Yes (Other)
  Sender: FDA-Public Use
  Company Number: DE-MYLANLABS-2020M1037333

PATIENT
  Age: 70 Year
  Sex: Male

DRUGS (30)
  1. RITUXIMAB. [Suspect]
     Active Substance: RITUXIMAB
     Indication: DIFFUSE LARGE B-CELL LYMPHOMA
     Dosage: 6 COURSES OF MONTHLY ADMINISTERED R-CHOP
     Route: 065
  2. GEMCITABINE. [Concomitant]
     Active Substance: GEMCITABINE
     Indication: DIFFUSE LARGE B-CELL LYMPHOMA
     Dosage: 1000 MILLIGRAM/SQ. METER, AS A PART OF R-GEM/OX REGIMEN
     Route: 065
  3. CYCLOPHOSPHAMIDE. [Suspect]
     Active Substance: CYCLOPHOSPHAMIDE
     Indication: DIFFUSE LARGE B-CELL LYMPHOMA
     Dosage: (CLASSICAL R-CHOP REGIMEN WAS ADMINISTERED IN 75 % DOSE REDUCTION DUE TO COMORBIDITIES. R-CHOP
     Route: 065
  4. MELPHALAN. [Suspect]
     Active Substance: MELPHALAN
     Indication: CHEMOTHERAPY
  5. OXALIPLATIN. [Concomitant]
     Active Substance: OXALIPLATIN
     Indication: DIFFUSE LARGE B-CELL LYMPHOMA
     Dosage: AS A PART OF R-GEM/OX REGIMEN
     Route: 065
  6. CARMUSTINE. [Suspect]
     Active Substance: CARMUSTINE
     Indication: CHEMOTHERAPY
  7. CYCLOPHOSPHAMIDE. [Suspect]
     Active Substance: CYCLOPHOSPHAMIDE
     Dosage: 750 MILLIGRAM/SQ. METER, CYCLE, 750 MG/M2, CYCLIC (6 CYCLES)
     Route: 065
  8. RITUXIMAB. [Suspect]
     Active Substance: RITUXIMAB
     Dosage: AS A PART OF R-DHAP REGIMEN
     Route: 065
  9. CISPLATIN. [Concomitant]
     Active Substance: CISPLATIN
     Indication: DIFFUSE LARGE B-CELL LYMPHOMA
     Dosage: 100 MILLIGRAM/SQ. METER, AS A PART OF R-DHAP REGIMEN
     Route: 065
  10. ETOPOSIDE. [Concomitant]
     Active Substance: ETOPOSIDE
     Indication: DIFFUSE LARGE B-CELL LYMPHOMA
     Dosage: AS A PART OF DEXA-BEAM REGIMEN; OVER 4 DAYS
     Route: 065
  11. GEMCITABINE. [Concomitant]
     Active Substance: GEMCITABINE
     Indication: CHEMOTHERAPY
  12. ETOPOSIDE. [Concomitant]
     Active Substance: ETOPOSIDE
     Indication: CHEMOTHERAPY
  13. VINCRISTINE [Suspect]
     Active Substance: VINCRISTINE
     Dosage: (CLASSICAL R-CHOP REGIMEN WAS ADMINISTERED IN 75 % DOSE REDUCTION DUE TO COMORBIDITIES. R-CHOP
     Route: 065
  14. RITUXIMAB. [Suspect]
     Active Substance: RITUXIMAB
     Dosage: 375 MG/M2, CYCLIC (6 CYCLES)
     Route: 065
  15. OXALIPLATIN. [Concomitant]
     Active Substance: OXALIPLATIN
     Indication: CHEMOTHERAPY
  16. PREDNISOLONE. [Suspect]
     Active Substance: PREDNISOLONE
     Dosage: (CLASSICAL R-CHOP REGIMEN WAS ADMINISTERED IN 75 % DOSE REDUCTION DUE TO COMORBIDITIES. R-CHOP
     Route: 065
  17. DOXORUBICIN [Suspect]
     Active Substance: DOXORUBICIN
     Indication: CHEMOTHERAPY
     Dosage: (CLASSICAL R-CHOP REGIMEN WAS ADMINISTERED IN 75% DOSE REDUCTION DUE TO COMORBIDITIES.R-CHOP REG
     Route: 065
  18. DEXAMETHASONE. [Suspect]
     Active Substance: DEXAMETHASONE
     Indication: DIFFUSE LARGE B-CELL LYMPHOMA
     Dosage: 24 MILLIGRAM (AS A PART OF DEXA-BEAM REGIMEN)
     Route: 065
  19. MELPHALAN. [Suspect]
     Active Substance: MELPHALAN
     Indication: DIFFUSE LARGE B-CELL LYMPHOMA
     Dosage: 20 MILLIGRAM/SQ. METER (AS A PART OF DEXA-BEAM REGIMEN)
     Route: 065
  20. RITUXIMAB. [Suspect]
     Active Substance: RITUXIMAB
     Dosage: (CLASSICAL R-CHOP REGIMEN WAS ADMINISTERED IN 75% DOSE REDUCTION DUE TO COMORBIDITIES.R-CHOP)
     Route: 065
  21. CYTARABINE. [Concomitant]
     Active Substance: CYTARABINE
     Indication: DIFFUSE LARGE B-CELL LYMPHOMA
     Dosage: AS A PART OF DEXA-BEAM REGIMEN; OVER 4 DAYS
     Route: 065
  22. DOXORUBICIN [Suspect]
     Active Substance: DOXORUBICIN
     Indication: DIFFUSE LARGE B-CELL LYMPHOMA
     Dosage: 20 MG/M2, CYCLIC (6 CYCLES)
     Route: 065
  23. VINCRISTINE [Suspect]
     Active Substance: VINCRISTINE
     Indication: DIFFUSE LARGE B-CELL LYMPHOMA
     Dosage: 1.4 MILLIGRAM/SQ. METER, CYCLE, 1.4 MG/M2, CYCLIC (6 CYCLES)
     Route: 065
  24. CARMUSTINE. [Suspect]
     Active Substance: CARMUSTINE
     Indication: DIFFUSE LARGE B-CELL LYMPHOMA
     Dosage: AS A PART OF DEXA-BEAM REGIMEN
     Route: 065
  25. CYTARABINE. [Concomitant]
     Active Substance: CYTARABINE
     Indication: CHEMOTHERAPY
     Dosage: AS A PART OF R-DHAP REGIMEN
     Route: 065
  26. CISPLATIN. [Concomitant]
     Active Substance: CISPLATIN
     Indication: CHEMOTHERAPY
  27. PREDNISOLONE. [Suspect]
     Active Substance: PREDNISOLONE
     Indication: DIFFUSE LARGE B-CELL LYMPHOMA
     Dosage: 100 MG, CYCLIC (6 CYCLES)
     Route: 065
  28. ENDOXAN                            /00021102/ [Suspect]
     Active Substance: CYCLOPHOSPHAMIDE
     Indication: DIFFUSE LARGE B-CELL LYMPHOMA
     Dosage: 6 COURSES OF MONTHLY ADMINISTERED R-CHOP
     Route: 065
  29. DEXAMETHASONE. [Suspect]
     Active Substance: DEXAMETHASONE
     Indication: CHEMOTHERAPY
     Dosage: 16 MILLIGRAM (AS A PART OF R-DHAP REGIMEN)
     Route: 065
  30. BENDAMUSTINE [Concomitant]
     Active Substance: BENDAMUSTINE
     Indication: CHEMOTHERAPY
     Dosage: 90 MILLIGRAM/SQ. METER
     Route: 065

REACTIONS (1)
  - Thrombocytopenia [Recovered/Resolved]
